FAERS Safety Report 6480980-3 (Version None)
Quarter: 2009Q4

REPORT INFORMATION
  Report Type: 
  Country: None (occurrence: None)
  Receive Date: 20091208
  Receipt Date: 20091124
  Transmission Date: 20100525
  Serious: Yes (Other)
  Sender: FDA-Public Use
  Company Number: GB-MYLANLABS-2008S1001089

PATIENT
  Age: 40 Year
  Sex: Male

DRUGS (8)
  1. VERAPAMIL [Suspect]
     Indication: CLUSTER HEADACHE
     Route: 048
     Dates: start: 20001201, end: 20010901
  2. VERAPAMIL [Suspect]
     Route: 048
     Dates: start: 20010901, end: 20011101
  3. VERAPAMIL [Suspect]
     Route: 048
     Dates: start: 20011101
  4. VERAPAMIL [Suspect]
     Route: 048
     Dates: start: 20001201
  5. SUMATRIPTAN [Concomitant]
     Indication: DRUG USE FOR UNKNOWN INDICATION
     Route: 058
  6. OXYGEN [Concomitant]
     Indication: DRUG USE FOR UNKNOWN INDICATION
     Dosage: HIGH DOSE AND FLOW RATE
  7. VALPROATE SODIUM [Concomitant]
     Indication: DRUG USE FOR UNKNOWN INDICATION
  8. ERGOTAMINE [Concomitant]
     Indication: DRUG USE FOR UNKNOWN INDICATION

REACTIONS (2)
  - GINGIVAL BLEEDING [None]
  - GINGIVAL HYPERPLASIA [None]
